FAERS Safety Report 24698488 (Version 4)
Quarter: 2025Q1

REPORT INFORMATION
  Report Type: Report from Study
  Country: GB (occurrence: GB)
  Receive Date: 20241204
  Receipt Date: 20250127
  Transmission Date: 20250409
  Serious: Yes (Other)
  Sender: ABBVIE
  Company Number: GB-ABBVIE-6029565

PATIENT
  Age: 53 Year
  Sex: Female

DRUGS (1)
  1. SKYRIZI [Suspect]
     Active Substance: RISANKIZUMAB-RZAA
     Indication: Crohn^s disease
     Dosage: STRENGTH: 360MG/2.4ML, DOSE: 1.00 EA
     Route: 058

REACTIONS (4)
  - Back injury [Unknown]
  - Paraesthesia [Unknown]
  - Joint swelling [Unknown]
  - Product lot number issue [Unknown]

NARRATIVE: CASE EVENT DATE: 20240101
